FAERS Safety Report 15331156 (Version 1)
Quarter: 2018Q3

REPORT INFORMATION
  Report Type: Other
  Country: None (occurrence: US)
  Receive Date: 20180829
  Receipt Date: 20180829
  Transmission Date: 20181010
  Serious: Yes (Other)
  Sender: FDA-Public Use
  Company Number: US-MEDAC PHARMA, INC.-2054430

PATIENT
  Age: 60 Year
  Sex: Female

DRUGS (4)
  1. ADALIMUMAB [Concomitant]
     Active Substance: ADALIMUMAB
  2. METHOTREXATE. [Suspect]
     Active Substance: METHOTREXATE
     Indication: RHEUMATOID ARTHRITIS
  3. ETANERCEPT [Concomitant]
     Active Substance: ETANERCEPT
  4. RITUXIMAB. [Concomitant]
     Active Substance: RITUXIMAB

REACTIONS (1)
  - Histoplasmosis [Recovered/Resolved]
